FAERS Safety Report 5110266-0 (Version None)
Quarter: 2006Q3

REPORT INFORMATION
  Report Type: 
  Country: None (occurrence: None)
  Receive Date: 20060919
  Receipt Date: 20060919
  Transmission Date: 20061208
  Serious: Yes (Disabling, Other)
  Sender: FDA-Public Use
  Company Number: None

PATIENT
  Sex: Male
  Weight: 61.5985 kg

DRUGS (10)
  1. PRIMAXIN [Suspect]
     Indication: UROSEPSIS
     Dosage: 500 MG  EVERY 6 HOURS  IV
     Route: 042
     Dates: start: 20060814, end: 20060824
  2. KETOCONAZOLE [Concomitant]
  3. COLACE [Concomitant]
  4. ALBUTEROL [Concomitant]
  5. SULFAMETHOXAZOLE [Concomitant]
  6. FAMOTIDINE [Concomitant]
  7. TRUVADA [Concomitant]
  8. BETHANECHOL [Concomitant]
  9. OXANDRIN [Concomitant]
  10. MORPHINE SULFATE [Concomitant]

REACTIONS (2)
  - RASH GENERALISED [None]
  - RASH MORBILLIFORM [None]
